FAERS Safety Report 23187679 (Version 1)
Quarter: 2023Q4

REPORT INFORMATION
  Report Type: Spontaneous
  Country: US (occurrence: None)
  Receive Date: 20231115
  Receipt Date: 20231115
  Transmission Date: 20240110
  Serious: No
  Sender: FDA-Public Use
  Company Number: None

PATIENT
  Sex: Female
  Weight: 87.18 kg

DRUGS (2)
  1. PERTUZUMAB [Suspect]
     Active Substance: PERTUZUMAB
  2. HERCEPTIN [Concomitant]
     Active Substance: TRASTUZUMAB
     Dates: end: 20231109

REACTIONS (2)
  - Hypersensitivity [None]
  - Drug hypersensitivity [None]

NARRATIVE: CASE EVENT DATE: 20231109
